FAERS Safety Report 8389643-0 (Version None)
Quarter: 2012Q2

REPORT INFORMATION
  Report Type: 
  Country: None (occurrence: None)
  Receive Date: 20120528
  Receipt Date: 20120515
  Transmission Date: 20120825
  Serious: Yes (Hospitalization)
  Sender: FDA-Public Use
  Company Number: DE-ROCHE-1070232

PATIENT
  Sex: Female
  Weight: 57 kg

DRUGS (4)
  1. CARVEDILOL [Concomitant]
     Route: 048
     Dates: start: 20120119, end: 20120427
  2. VALSARTAN [Concomitant]
     Indication: HYPERTENSION
     Route: 048
     Dates: start: 20120119, end: 20120427
  3. AVASTIN [Suspect]
     Indication: BREAST CANCER
     Route: 042
     Dates: start: 20120119, end: 20120412
  4. XELODA [Concomitant]
     Indication: BREAST CANCER
     Route: 048
     Dates: start: 20120119, end: 20120427

REACTIONS (1)
  - BILIARY TRACT DISORDER [None]
